FAERS Safety Report 10681210 (Version 1)
Quarter: 2014Q4

REPORT INFORMATION
  Report Type: Report from Study
  Country: IE (occurrence: IE)
  Receive Date: 20141230
  Receipt Date: 20141230
  Transmission Date: 20150529
  Serious: Yes (Other)
  Sender: FDA-Public Use
  Company Number: IE-BRISTOL-MYERS SQUIBB COMPANY-BMS-2014-003291

PATIENT
  Sex: Female

DRUGS (1)
  1. IPILIMUMAB [Suspect]
     Active Substance: IPILIMUMAB
     Indication: PRODUCT USED FOR UNKNOWN INDICATION
     Dosage: UNK
     Route: 042
     Dates: start: 20141113

REACTIONS (6)
  - Asthenopia [Unknown]
  - Tumour haemorrhage [Unknown]
  - Fatigue [Unknown]
  - Dysgeusia [Unknown]
  - Pruritus [Unknown]
  - Surgery [Unknown]
